FAERS Safety Report 6892913-6 (Version None)
Quarter: 2010Q3

REPORT INFORMATION
  Report Type: 
  Country: None (occurrence: None)
  Receive Date: 20100731
  Receipt Date: 20081111
  Transmission Date: 20110219
  Serious: No
  Sender: FDA-Public Use
  Company Number: US-PFIZER INC-2005159986

PATIENT
  Sex: Male

DRUGS (6)
  1. NEURONTIN [Suspect]
     Route: 065
  2. SPIRIVA [Concomitant]
     Route: 065
  3. CYMBALTA [Concomitant]
     Route: 065
  4. NORTRIPTYLINE [Concomitant]
     Route: 065
  5. METFORMIN HCL [Concomitant]
     Route: 065
  6. TRICOR [Concomitant]
     Route: 065

REACTIONS (8)
  - DISTURBANCE IN ATTENTION [None]
  - FATIGUE [None]
  - HERPES ZOSTER [None]
  - PAIN [None]
  - SOMNOLENCE [None]
  - URTICARIA [None]
  - VISION BLURRED [None]
  - WEIGHT INCREASED [None]
